FAERS Safety Report 8249538-X (Version None)
Quarter: 2012Q1

REPORT INFORMATION
  Report Type: 
  Country: None (occurrence: None)
  Receive Date: 20120327
  Receipt Date: 20120322
  Transmission Date: 20120608
  Serious: Yes (Other)
  Sender: FDA-Public Use
  Company Number: 2012-022847

PATIENT
  Age: 66 Year
  Sex: Female
  Weight: 65 kg

DRUGS (4)
  1. EPOGEN [Concomitant]
  2. ASPIRIN [Suspect]
     Indication: ANTICOAGULANT THERAPY
     Dosage: 100 MG, QD
  3. ANTIHYPERTENSIVES [Concomitant]
  4. INSULIN [Concomitant]

REACTIONS (5)
  - RESPIRATORY ALKALOSIS [None]
  - FATIGUE [None]
  - RENAL IMPAIRMENT [None]
  - MUSCLE SPASMS [None]
  - PALLOR [None]
